FAERS Safety Report 5599409-2 (Version None)
Quarter: 2008Q1

REPORT INFORMATION
  Report Type: 
  Country: None (occurrence: None)
  Receive Date: 20080122
  Receipt Date: 20080114
  Transmission Date: 20080703
  Serious: Yes (Disabling, Other)
  Sender: FDA-Public Use
  Company Number: GB-PFIZER INC-2007068139

PATIENT
  Sex: Female
  Weight: 60 kg

DRUGS (11)
  1. EXUBERA [Suspect]
     Indication: DIABETES MELLITUS
     Route: 055
     Dates: start: 20070713, end: 20070905
  2. ASPIRIN 10GR TIMED DISINTEGRATION TAB [Concomitant]
  3. LIPITOR [Concomitant]
  4. EZETROL [Concomitant]
  5. AMLODIPINE [Concomitant]
  6. CODEINE PHOSPHATE [Concomitant]
  7. LANSOPRAZOLE [Concomitant]
  8. VALSARTAN [Concomitant]
  9. NICORANDIL [Concomitant]
  10. BISOPROLOL FUMARATE [Concomitant]
  11. HYPURIN BOVINE LENTE [Concomitant]

REACTIONS (4)
  - BLOOD GLUCOSE FLUCTUATION [None]
  - BLOOD GLUCOSE INCREASED [None]
  - HYPOGLYCAEMIA [None]
  - LOSS OF CONSCIOUSNESS [None]
